FAERS Safety Report 9322336 (Version 1)
Quarter: 2013Q2

REPORT INFORMATION
  Report Type: Spontaneous
  Country: US (occurrence: US)
  Receive Date: 20130531
  Receipt Date: 20130531
  Transmission Date: 20140414
  Serious: Yes (Other)
  Sender: FDA-Public Use
  Company Number: US-MERCK-1305USA013750

PATIENT
  Sex: Female

DRUGS (3)
  1. FOSAMAX [Suspect]
     Dosage: UNK
     Route: 048
     Dates: start: 199510, end: 200510
  2. FOSAMAX PLUS D [Suspect]
     Dosage: UNK
     Route: 048
     Dates: start: 200510, end: 200904
  3. ALENDRONATE SODIUM [Suspect]
     Dosage: UNK
     Dates: start: 200904, end: 200912

REACTIONS (2)
  - Femur fracture [Unknown]
  - Intramedullary rod insertion [Unknown]
